FAERS Safety Report 9403321 (Version 1)
Quarter: 2013Q3

REPORT INFORMATION
  Report Type: Spontaneous
  Country: GB (occurrence: GB)
  Receive Date: 20130716
  Receipt Date: 20130716
  Transmission Date: 20140515
  Serious: Yes (Life-Threatening)
  Sender: FDA-Public Use
  Company Number: ALCN2013GB000538

PATIENT
  Age: 90 Year
  Sex: Female
  Weight: 54 kg

DRUGS (13)
  1. CIPROFLOXACIN [Suspect]
  2. BENDROFLUMETHIAZIDE [Concomitant]
  3. BISOPROLOL [Concomitant]
  4. DOSULEPIN [Concomitant]
  5. DOXAZOSIN [Concomitant]
  6. MEBEVERINE HYDROCHLORIDE [Concomitant]
  7. PARACETAMOL [Concomitant]
  8. IRBESARTAN [Concomitant]
  9. INDAPAMIDE [Concomitant]
  10. RANITIDINE [Concomitant]
  11. HYDROCORTISONE [Concomitant]
  12. NATRILIX [Concomitant]
  13. NITROFURANTOIN [Concomitant]

REACTIONS (2)
  - Syncope [Unknown]
  - Hypotension [Recovered/Resolved]
